FAERS Safety Report 9627594 (Version 2)
Quarter: 2013Q4

REPORT INFORMATION
  Report Type: Not Available
  Country: US (occurrence: US)
  Receive Date: 20131016
  Receipt Date: 20131016
  Transmission Date: 20140711
  Serious: No
  Sender: FDA-Public Use
  Company Number: US-LUNDBECK-DKLU1090168

PATIENT
  Age: 45 Year
  Sex: Male
  Weight: 127 kg

DRUGS (2)
  1. SABRIL (TABLET) [Suspect]
     Indication: PRODUCT USED FOR UNKNOWN INDICATION
     Dates: start: 20130208
  2. SABRIL (TABLET) [Suspect]
     Dates: start: 20130410

REACTIONS (3)
  - Fatigue [Unknown]
  - Lethargy [Unknown]
  - Drug ineffective [Unknown]
